FAERS Safety Report 18923301 (Version 4)
Quarter: 2022Q2

REPORT INFORMATION
  Report Type: Report from Study
  Country: US (occurrence: US)
  Receive Date: 20210222
  Receipt Date: 20220614
  Transmission Date: 20220720
  Serious: Yes (Hospitalization, Other)
  Sender: FDA-Public Use
  Company Number: US-TAKEDA-US202023380

PATIENT
  Age: 4 Year
  Sex: Female

DRUGS (1)
  1. HUMAN IMMUNOGLOBULIN G [Suspect]
     Active Substance: HUMAN IMMUNOGLOBULIN G
     Indication: Primary immunodeficiency syndrome
     Dosage: 2 GRAM, 1/WEEK
     Route: 065

REACTIONS (13)
  - Blood glucose decreased [Unknown]
  - Unresponsive to stimuli [Unknown]
  - Alopecia [Unknown]
  - Injury associated with device [Unknown]
  - Therapy cessation [Unknown]
  - Tremor [Unknown]
  - Hypotonia [Unknown]
  - Nasopharyngitis [Unknown]
  - Illness [Unknown]
  - Blood glucose abnormal [Unknown]
  - Ear infection [Unknown]
  - Upper respiratory tract infection [Unknown]
  - Inappropriate schedule of product administration [Unknown]

NARRATIVE: CASE EVENT DATE: 20200717
